FAERS Safety Report 7353718-5 (Version None)
Quarter: 2011Q1

REPORT INFORMATION
  Report Type: 
  Country: None (occurrence: None)
  Receive Date: 20110303
  Receipt Date: 20100730
  Transmission Date: 20110831
  Serious: Yes (Hospitalization)
  Sender: FDA-Public Use
  Company Number: WAES 1007USA04107

PATIENT
  Age: 52 Year
  Sex: Male

DRUGS (2)
  1. PRINIVIL [Suspect]
     Indication: PRODUCT USED FOR UNKNOWN INDICATION
     Dosage: PO
     Route: 048
  2. LASIX [Concomitant]

REACTIONS (2)
  - HYPOTENSION [None]
  - DIARRHOEA [None]
